FAERS Safety Report 14861210 (Version 1)
Quarter: 2018Q2

REPORT INFORMATION
  Report Type: Spontaneous
  Country: US (occurrence: US)
  Receive Date: 20180423
  Receipt Date: 20180423
  Transmission Date: 20180711
  Serious: Yes (Hospitalization)
  Sender: FDA-Public Use
  Company Number: None

PATIENT
  Age: 71 Year
  Sex: Female

DRUGS (25)
  1. ACTEMRA [Suspect]
     Active Substance: TOCILIZUMAB
     Indication: RHEUMATOID ARTHRITIS
     Route: 058
     Dates: start: 20170328
  2. OXYCONTIN [Concomitant]
     Active Substance: OXYCODONE HYDROCHLORIDE
  3. NOVOLOG [Concomitant]
     Active Substance: INSULIN ASPART
  4. OXYCODONE AND ACETAMINOPHEN [Concomitant]
     Active Substance: ACETAMINOPHEN\OXYCODONE HYDROCHLORIDE
  5. PREDNISONE. [Concomitant]
     Active Substance: PREDNISONE
  6. METHOTREXATE. [Concomitant]
     Active Substance: METHOTREXATE
  7. POLYETH GLYC [Concomitant]
     Active Substance: POLYETHYLENE GLYCOLS
  8. LANTUS [Concomitant]
     Active Substance: INSULIN GLARGINE
  9. ADVAIR DISKU AER [Concomitant]
  10. POT CHLORIDE [Concomitant]
     Active Substance: POTASSIUM CHLORIDE
  11. METFORMIN [Concomitant]
     Active Substance: METFORMIN HYDROCHLORIDE
  12. ALBUTEROL. [Concomitant]
     Active Substance: ALBUTEROL
  13. LYRICA [Concomitant]
     Active Substance: PREGABALIN
  14. IPRATROPIUM [Concomitant]
     Active Substance: IPRATROPIUM
  15. CALCIUM + D3 [Concomitant]
     Active Substance: CALCIUM\CHOLECALCIFEROL
  16. TRAZODONE [Concomitant]
     Active Substance: TRAZODONE HYDROCHLORIDE
  17. VOLTAREN [Concomitant]
     Active Substance: DICLOFENAC SODIUM
  18. IRON [Concomitant]
     Active Substance: IRON
  19. FLUOXETINE [Concomitant]
     Active Substance: FLUOXETINE HYDROCHLORIDE
  20. DILTIAZEM. [Concomitant]
     Active Substance: DILTIAZEM
  21. FUROSEMIDE. [Concomitant]
     Active Substance: FUROSEMIDE
  22. VICTOZA [Concomitant]
     Active Substance: LIRAGLUTIDE
  23. AMLODIPINE [Concomitant]
     Active Substance: AMLODIPINE BESYLATE
  24. ELIQUIS [Concomitant]
     Active Substance: APIXABAN
  25. NYSTOP [Concomitant]
     Active Substance: NYSTATIN

REACTIONS (2)
  - Drug dose omission [None]
  - Pulmonary oedema [None]

NARRATIVE: CASE EVENT DATE: 201803
